FAERS Safety Report 21916028 (Version 2)
Quarter: 2023Q1

REPORT INFORMATION
  Report Type: Spontaneous
  Country: JP (occurrence: JP)
  Receive Date: 20230126
  Receipt Date: 20230216
  Transmission Date: 20230418
  Serious: Yes (Other)
  Sender: FDA-Public Use
  Company Number: JP-BAYER-2023A010632

PATIENT
  Age: 87 Year
  Sex: Female

DRUGS (1)
  1. IOPROMIDE [Suspect]
     Active Substance: IOPROMIDE
     Indication: Catheterisation cardiac
     Dosage: ONCE
     Dates: start: 20220705, end: 20220705

REACTIONS (1)
  - Platelet count decreased [Recovered/Resolved]

NARRATIVE: CASE EVENT DATE: 20220705
